FAERS Safety Report 8187545-6 (Version None)
Quarter: 2012Q1

REPORT INFORMATION
  Report Type: 
  Country: None (occurrence: None)
  Receive Date: 20120306
  Receipt Date: 20120229
  Transmission Date: 20120608
  Serious: Yes (Other)
  Sender: FDA-Public Use
  Company Number: BR-PFIZER INC-2012054100

PATIENT
  Age: 53 Year
  Sex: Female

DRUGS (4)
  1. LYRICA [Suspect]
     Dosage: UNK
     Route: 048
     Dates: start: 20110101
  2. CLONAZEPAM [Concomitant]
     Dosage: UNK
     Dates: start: 19960101
  3. CYMBALTA [Concomitant]
     Dosage: UNK
     Dates: start: 20110801
  4. VALDOXAN [Concomitant]
     Dosage: UNK
     Dates: start: 20110801

REACTIONS (2)
  - SOMNOLENCE [None]
  - COMPLEX REGIONAL PAIN SYNDROME [None]
